FAERS Safety Report 5062233-3 (Version None)
Quarter: 2006Q3

REPORT INFORMATION
  Report Type: 
  Country: None (occurrence: None)
  Receive Date: 20060721
  Receipt Date: 20060710
  Transmission Date: 20061208
  Serious: Yes (Death, Hospitalization)
  Sender: FDA-Public Use
  Company Number: T200600749

PATIENT
  Age: 17 Year
  Sex: Male

DRUGS (1)
  1. METHYLPHYENIDATE HCL [Suspect]
     Indication: ATTENTION DEFICIT/HYPERACTIVITY DISORDER
     Dosage: 15 MG, TID,

REACTIONS (21)
  - ANXIETY [None]
  - APHASIA [None]
  - CARDIAC FAILURE [None]
  - CEREBRAL INFARCTION [None]
  - COAGULOPATHY [None]
  - CONGESTIVE CARDIOMYOPATHY [None]
  - CYANOSIS [None]
  - DYSPNOEA EXERTIONAL [None]
  - EJECTION FRACTION DECREASED [None]
  - HEMIPARESIS [None]
  - HEPATIC CONGESTION [None]
  - INFLUENZA LIKE ILLNESS [None]
  - INTERNATIONAL NORMALISED RATIO INCREASED [None]
  - INTRACARDIAC THROMBUS [None]
  - LOWER RESPIRATORY TRACT INFECTION [None]
  - MITRAL VALVE INCOMPETENCE [None]
  - ORTHOPNOEA [None]
  - POOR PERIPHERAL CIRCULATION [None]
  - PULSE PRESSURE DECREASED [None]
  - RESTLESSNESS [None]
  - SINUS TACHYCARDIA [None]
